FAERS Safety Report 5047959-X (Version None)
Quarter: 2006Q2

REPORT INFORMATION
  Report Type: 
  Country: None (occurrence: None)
  Receive Date: 20060601
  Receipt Date: 20060317
  Transmission Date: 20061013
  Serious: No
  Sender: FDA-Public Use
  Company Number: 2006PV010467

PATIENT
  Age: 76 Year
  Sex: Female
  Weight: 81.6475 kg

DRUGS (5)
  1. BYETTA [Suspect]
     Indication: DIABETES MELLITUS NON-INSULIN-DEPENDENT
     Dosage: 5 MCG;BID;SC
     Route: 058
     Dates: start: 20060311, end: 20060316
  2. GLUCOPHAGE [Concomitant]
  3. GLYBURIDE [Concomitant]
  4. ACTOS [Concomitant]
  5. VASERETIC [Concomitant]

REACTIONS (6)
  - DIFFICULTY IN WALKING [None]
  - DIZZINESS [None]
  - FEELING JITTERY [None]
  - HYPERSOMNIA [None]
  - MOTION SICKNESS [None]
  - NERVOUSNESS [None]
